FAERS Safety Report 7336988-9 (Version None)
Quarter: 2011Q1

REPORT INFORMATION
  Report Type: 
  Country: None (occurrence: None)
  Receive Date: 20110224
  Receipt Date: 20110209
  Transmission Date: 20110831
  Serious: Yes (Hospitalization)
  Sender: FDA-Public Use
  Company Number: 027248

PATIENT
  Sex: Female
  Weight: 63.5036 kg

DRUGS (1)
  1. CIMZIA [Suspect]
     Indication: CROHN'S DISEASE
     Dosage: (2 SHOTS SUBCUTANEOUS)
     Route: 058

REACTIONS (4)
  - BACK PAIN [None]
  - ABDOMINAL PAIN [None]
  - VOMITING [None]
  - MEDICAL DEVICE COMPLICATION [None]
